FAERS Safety Report 21929482 (Version 1)
Quarter: 2023Q1

REPORT INFORMATION
  Report Type: Report from Study
  Country: US (occurrence: US)
  Receive Date: 20230131
  Receipt Date: 20230131
  Transmission Date: 20230418
  Serious: Yes (Other)
  Sender: FDA-Public Use
  Company Number: US-ABBVIE-4288195

PATIENT
  Sex: Female

DRUGS (1)
  1. VENCLEXTA [Suspect]
     Active Substance: VENETOCLAX
     Indication: Acute myeloid leukaemia
     Dosage: TAKE THREE TABLETS BY MOUTH OR NASOGASTRIC TUBE ONCE DAILY WITH FOOD AND WATER?FORM STRENGTH: 10MG
     Route: 048

REACTIONS (1)
  - Bone marrow transplant [Unknown]
